FAERS Safety Report 23265897 (Version 1)
Quarter: 2023Q4

REPORT INFORMATION
  Report Type: Spontaneous
  Country: US (occurrence: US)
  Receive Date: 20231206
  Receipt Date: 20231206
  Transmission Date: 20240110
  Serious: No
  Sender: FDA-Public Use
  Company Number: US-ELI_LILLY_AND_COMPANY-US202312002208

PATIENT
  Age: 25 Year
  Sex: Male

DRUGS (2)
  1. OLUMIANT [Suspect]
     Active Substance: BARICITINIB
     Indication: Alopecia areata
     Dosage: 4 MG, UNKNOWN
     Route: 065
     Dates: start: 20220901
  2. OLUMIANT [Suspect]
     Active Substance: BARICITINIB
     Indication: Alopecia universalis

REACTIONS (1)
  - Alopecia areata [Not Recovered/Not Resolved]
